FAERS Safety Report 25250127 (Version 1)
Quarter: 2025Q2

REPORT INFORMATION
  Report Type: Spontaneous
  Country: US (occurrence: None)
  Receive Date: 20250429
  Receipt Date: 20250429
  Transmission Date: 20250717
  Serious: Yes (Disabling, Other)
  Sender: FDA-CTU
  Company Number: None

PATIENT
  Age: 21 Year
  Sex: Male
  Weight: 61.2 kg

DRUGS (1)
  1. PROPECIA [Suspect]
     Active Substance: FINASTERIDE
     Indication: Androgenetic alopecia
     Dosage: 1 TABLET DAILY ORAL ?
     Route: 048
     Dates: start: 20241014, end: 20250214

REACTIONS (42)
  - Depression [None]
  - Anxiety [None]
  - Visual snow syndrome [None]
  - Photosensitivity reaction [None]
  - Vitreous floaters [None]
  - Altered visual depth perception [None]
  - Diplopia [None]
  - Vision blurred [None]
  - Visual impairment [None]
  - Migraine [None]
  - Hyperacusis [None]
  - Tinnitus [None]
  - Brain fog [None]
  - Muscle spasms [None]
  - Dry eye [None]
  - Dry skin [None]
  - Insomnia [None]
  - Pulse abnormal [None]
  - Asthenia [None]
  - Fatigue [None]
  - Anhedonia [None]
  - Loss of libido [None]
  - Genital discolouration [None]
  - Sexual dysfunction [None]
  - Skin odour abnormal [None]
  - Hypohidrosis [None]
  - Gastrointestinal disorder [None]
  - Faeces discoloured [None]
  - Dysuria [None]
  - Pollakiuria [None]
  - Pyuria [None]
  - Temperature regulation disorder [None]
  - Feeling cold [None]
  - Peripheral coldness [None]
  - Decreased appetite [None]
  - Thirst decreased [None]
  - Haematocrit increased [None]
  - Vitamin D deficiency [None]
  - Educational problem [None]
  - Quality of life decreased [None]
  - Disability [None]
  - Loss of personal independence in daily activities [None]

NARRATIVE: CASE EVENT DATE: 20241220
